FAERS Safety Report 17265893 (Version 1)
Quarter: 2020Q1

REPORT INFORMATION
  Report Type: Spontaneous
  Country: DE (occurrence: DE)
  Receive Date: 20200114
  Receipt Date: 20200114
  Transmission Date: 20200409
  Serious: Yes (Other)
  Sender: FDA-Public Use
  Company Number: DE-TEVA-2020-DE-1167540

PATIENT
  Age: 29 Year
  Sex: Female

DRUGS (1)
  1. COPAXONE [Suspect]
     Active Substance: GLATIRAMER ACETATE
     Indication: MULTIPLE SCLEROSIS
     Dosage: 20 MILLIGRAM DAILY;
     Dates: start: 20081130

REACTIONS (5)
  - Injection site haematoma [Recovering/Resolving]
  - Injection site pain [Recovering/Resolving]
  - Vasculitis [Unknown]
  - Injection site pain [Recovering/Resolving]
  - Injection site hypoaesthesia [Recovering/Resolving]

NARRATIVE: CASE EVENT DATE: 201912
